FAERS Safety Report 8617336 (Version 5)
Quarter: 2012Q4

REPORT INFORMATION
  Report Type: 
  Country: US (occurrence: US)
  Receive Date: 20120615
  Receipt Date: 20120830
  Transmission Date: 20130627
  Serious: Yes (Other)
  Sender: FDA-Public Use
  Company Number: US-PURDUE-USA-2012-0088399

PATIENT
  Age: 57 Year
  Sex: Male
  Weight: 106.58 kg

DRUGS (22)
  1. OXYCONTIN TABLETS [Suspect]
     Indication: PAIN IN EXTREMITY
     Dosage: 10 mg, see text
     Dates: start: 2002
  2. OXYCONTIN TABLETS [Suspect]
     Indication: BACK PAIN
     Dosage: 20 mg, see text
  3. OXYCONTIN TABLETS [Suspect]
     Dosage: 40 mg, UNK
  4. OXYCONTIN TABLETS [Suspect]
     Dosage: 160 mg, bid
     Dates: end: 201204
  5. LORTAB                             /00607101/ [Concomitant]
     Indication: PAIN
  6. INTERFERON                         /05982601/ [Concomitant]
     Indication: HEPATITIS C
  7. RIBAVIRIN [Concomitant]
     Indication: PRODUCT USED FOR UNKNOWN INDICATION
  8. PEGINTRON                          /01543001/ [Concomitant]
     Indication: PRODUCT USED FOR UNKNOWN INDICATION
  9. NEUPOGEN [Concomitant]
     Indication: PRODUCT USED FOR UNKNOWN INDICATION
  10. LEXAPRO [Concomitant]
     Indication: PRODUCT USED FOR UNKNOWN INDICATION
  11. CLONAZEPAM [Concomitant]
     Indication: PRODUCT USED FOR UNKNOWN INDICATION
  12. FLEXERIL                           /00428402/ [Concomitant]
     Dosage: 10 mg, tid
  13. FLUTICASONE [Concomitant]
     Indication: PRODUCT USED FOR UNKNOWN INDICATION
  14. NEURONTIN [Concomitant]
     Indication: PRODUCT USED FOR UNKNOWN INDICATION
  15. CORTISONE [Concomitant]
     Dosage: UNK
     Dates: start: 20090317
  16. LIDODERM [Concomitant]
     Indication: PRODUCT USED FOR UNKNOWN INDICATION
  17. ELAVIL                             /00002202/ [Concomitant]
     Indication: PRODUCT USED FOR UNKNOWN INDICATION
  18. LASIX                              /00032601/ [Concomitant]
     Indication: PRODUCT USED FOR UNKNOWN INDICATION
  19. AMBIEN [Concomitant]
     Indication: PRODUCT USED FOR UNKNOWN INDICATION
  20. HYDRODIURIL [Concomitant]
     Indication: PRODUCT USED FOR UNKNOWN INDICATION
  21. KENALOG [Concomitant]
     Indication: PRODUCT USED FOR UNKNOWN INDICATION
  22. NAPROSYN /00256201/ [Concomitant]
     Indication: PRODUCT USED FOR UNKNOWN INDICATION

REACTIONS (50)
  - Drug dependence [Unknown]
  - Drug withdrawal syndrome [Unknown]
  - Brain injury [Not Recovered/Not Resolved]
  - Injury [Unknown]
  - Deafness [Unknown]
  - Neurotoxicity [Unknown]
  - Nervous system disorder [Unknown]
  - Neuropathy peripheral [Unknown]
  - Unevaluable event [Unknown]
  - Major depression [Not Recovered/Not Resolved]
  - Breakthrough pain [Unknown]
  - Dysarthria [Unknown]
  - Logorrhoea [Unknown]
  - Bradyphrenia [Unknown]
  - Loss of employment [Unknown]
  - Decreased interest [Unknown]
  - Hyperaesthesia [Unknown]
  - Allodynia [Unknown]
  - Musculoskeletal pain [Not Recovered/Not Resolved]
  - Arthralgia [Not Recovered/Not Resolved]
  - Pain in extremity [Not Recovered/Not Resolved]
  - Pain [Unknown]
  - Back pain [Unknown]
  - Erectile dysfunction [Unknown]
  - Judgement impaired [Unknown]
  - Erythema [Unknown]
  - Euphoric mood [Unknown]
  - Oedema peripheral [Recovered/Resolved]
  - Inadequate analgesia [Not Recovered/Not Resolved]
  - Drug ineffective [Not Recovered/Not Resolved]
  - Chills [Unknown]
  - Costochondritis [Recovered/Resolved]
  - Neck pain [Not Recovered/Not Resolved]
  - Anxiety [Not Recovered/Not Resolved]
  - Affective disorder [Not Recovered/Not Resolved]
  - Intentional drug misuse [Unknown]
  - Wrong technique in drug usage process [Unknown]
  - Fatigue [Unknown]
  - Depressed mood [Unknown]
  - Irritability [Unknown]
  - Loss of libido [Unknown]
  - Sleep disorder [Unknown]
  - Apathy [Unknown]
  - Disturbance in attention [Unknown]
  - Sensory integrative dysfunction [Unknown]
  - Abdominal discomfort [Unknown]
  - Anhedonia [Unknown]
  - Dizziness [Unknown]
  - Balance disorder [Unknown]
  - Feeling abnormal [Unknown]
